FAERS Safety Report 19070055 (Version 12)
Quarter: 2025Q3

REPORT INFORMATION
  Report Type: Report from Study
  Country: CA (occurrence: CA)
  Receive Date: 20210329
  Receipt Date: 20250709
  Transmission Date: 20251021
  Serious: Yes (Other)
  Sender: TAKEDA
  Company Number: CA-TAKEDA-2021TUS019534

PATIENT
  Sex: Female

DRUGS (17)
  1. VEDOLIZUMAB [Suspect]
     Active Substance: VEDOLIZUMAB
     Indication: Colitis ulcerative
  2. VEDOLIZUMAB [Suspect]
     Active Substance: VEDOLIZUMAB
  3. VEDOLIZUMAB [Suspect]
     Active Substance: VEDOLIZUMAB
  4. VEDOLIZUMAB [Suspect]
     Active Substance: VEDOLIZUMAB
     Dosage: 300 MILLIGRAM, Q4WEEKS
     Dates: start: 20210531
  5. VEDOLIZUMAB [Suspect]
     Active Substance: VEDOLIZUMAB
     Dosage: 300 MILLIGRAM, Q4WEEKS
  6. VEDOLIZUMAB [Suspect]
     Active Substance: VEDOLIZUMAB
     Dosage: 300 MILLIGRAM, Q4WEEKS
  7. VEDOLIZUMAB [Suspect]
     Active Substance: VEDOLIZUMAB
     Dosage: 300 MILLIGRAM, Q4WEEKS
  8. VEDOLIZUMAB [Suspect]
     Active Substance: VEDOLIZUMAB
     Dosage: 300 MILLIGRAM, Q4WEEKS
  9. VEDOLIZUMAB [Suspect]
     Active Substance: VEDOLIZUMAB
     Dosage: 300 MILLIGRAM, Q4WEEKS
  10. VEDOLIZUMAB [Suspect]
     Active Substance: VEDOLIZUMAB
     Dosage: 300 MILLIGRAM, Q4WEEKS
  11. VEDOLIZUMAB [Suspect]
     Active Substance: VEDOLIZUMAB
     Dosage: 300 MILLIGRAM, Q4WEEKS
     Dates: start: 20210531
  12. VEDOLIZUMAB [Suspect]
     Active Substance: VEDOLIZUMAB
     Dosage: 300 MILLIGRAM, Q4WEEKS
  13. IRON [Concomitant]
     Active Substance: IRON
     Indication: Supplementation therapy
  14. PREDNISONE [Concomitant]
     Active Substance: PREDNISONE
  15. VITAMIN D [Concomitant]
     Active Substance: VITAMIN D NOS
  16. MIRENA [Concomitant]
     Active Substance: LEVONORGESTREL
  17. Petroleum jelly [Concomitant]
     Dosage: UNK, 3/WEEK

REACTIONS (14)
  - Colitis ulcerative [Unknown]
  - Haematochezia [Unknown]
  - Diarrhoea [Unknown]
  - Frequent bowel movements [Unknown]
  - Feeling hot [Unknown]
  - Faeces discoloured [Recovered/Resolved]
  - Chest discomfort [Unknown]
  - Abdominal discomfort [Unknown]
  - Musculoskeletal chest pain [Unknown]
  - Abdominal pain [Unknown]
  - Abdominal distension [Unknown]
  - Flatulence [Unknown]
  - Anal fissure [Unknown]
  - Nausea [Unknown]
